FAERS Safety Report 12247768 (Version 1)
Quarter: 2016Q2

REPORT INFORMATION
  Report Type: Spontaneous
  Country: US (occurrence: US)
  Receive Date: 20160408
  Receipt Date: 20160408
  Transmission Date: 20160815
  Serious: No
  Sender: FDA-Public Use
  Company Number: US-JNJFOC-20160322478

PATIENT
  Sex: Female
  Weight: 77.11 kg

DRUGS (2)
  1. ORTHO TRI CYCLEN LO [Suspect]
     Active Substance: ETHINYL ESTRADIOL\NORGESTIMATE
     Indication: PRODUCT USED FOR UNKNOWN INDICATION
     Route: 048
     Dates: start: 201601
  2. VITAMINS NOS [Concomitant]
     Active Substance: VITAMINS
     Route: 065

REACTIONS (2)
  - Inappropriate schedule of drug administration [Unknown]
  - Menstruation irregular [Unknown]
